FAERS Safety Report 6509776-0 (Version None)
Quarter: 2009Q4

REPORT INFORMATION
  Report Type: 
  Country: None (occurrence: None)
  Receive Date: 20091221
  Receipt Date: 20091221
  Transmission Date: 20100525
  Serious: Yes (Death)
  Sender: FDA-Public Use
  Company Number: None

PATIENT
  Sex: Female
  Weight: 83 kg

DRUGS (14)
  1. DEPOCYT [Suspect]
     Indication: BREAST CANCER METASTATIC
     Dosage: 50 MG ONE TIME INTRATHECAL
     Route: 037
     Dates: start: 20091121
  2. SOLU-CORTEF [Suspect]
     Indication: BREAST CANCER METASTATIC
     Dosage: 2.5 MG ONE TIME INTRATHECAL
     Route: 037
     Dates: start: 20091121
  3. CEFAZOLIN [Concomitant]
  4. DEXAMETHASONE TAB [Concomitant]
  5. ONDANSETRON [Concomitant]
  6. DOCUSATE [Concomitant]
  7. DRONABINOL [Concomitant]
  8. LEVETIRACETAM [Concomitant]
  9. LEVOTHYROXINE SODIUM [Concomitant]
  10. LORAZEPAM [Concomitant]
  11. NACL WITH MEQ KCL [Concomitant]
  12. TRAMADOL HCL [Concomitant]
  13. MORPHINE SULFATE [Concomitant]
  14. CAPECITABINE [Concomitant]

REACTIONS (6)
  - HYPONATRAEMIA [None]
  - INTRACRANIAL PRESSURE INCREASED [None]
  - LOSS OF CONSCIOUSNESS [None]
  - METASTASES TO MENINGES [None]
  - SYNCOPE [None]
  - TONIC CONVULSION [None]
